FAERS Safety Report 5050298-4 (Version None)
Quarter: 2006Q3

REPORT INFORMATION
  Report Type: 
  Country: None (occurrence: None)
  Receive Date: 20060707
  Receipt Date: 20060627
  Transmission Date: 20061208
  Serious: Yes (Death)
  Sender: FDA-Public Use
  Company Number: 2006-DE-02855GD

PATIENT
  Age: 92 Year
  Sex: Female

DRUGS (1)
  1. DIGOXIN [Suspect]

REACTIONS (6)
  - ATRIAL FIBRILLATION [None]
  - BRADYCARDIA [None]
  - HYPOTENSION [None]
  - HYPOTONIA [None]
  - SOMNOLENCE [None]
  - VENTRICULAR FIBRILLATION [None]
